FAERS Safety Report 5939013-7 (Version None)
Quarter: 2008Q4

REPORT INFORMATION
  Report Type: 
  Country: None (occurrence: None)
  Receive Date: 20081103
  Receipt Date: 20081028
  Transmission Date: 20090506
  Serious: No
  Sender: FDA-Public Use
  Company Number: US-BAYER-200814215BCC

PATIENT
  Age: 76 Year
  Sex: Male
  Weight: 64 kg

DRUGS (6)
  1. ALEVE (CAPLET) [Suspect]
     Indication: ANALGESIA
     Dosage: TOTAL DAILY DOSE: 440 MG  UNIT DOSE: 220 MG
     Route: 048
     Dates: start: 20081015
  2. DIGOXIN [Concomitant]
  3. DILTIAZEM HCL [Concomitant]
  4. THEOPHYLLINE [Concomitant]
  5. WARFARIN SODIUM [Concomitant]
  6. VITAMINS [Concomitant]

REACTIONS (1)
  - INTERNATIONAL NORMALISED RATIO INCREASED [None]
